FAERS Safety Report 5489891-3 (Version None)
Quarter: 2007Q4

REPORT INFORMATION
  Report Type: 
  Country: None (occurrence: None)
  Receive Date: 20071018
  Receipt Date: 20071009
  Transmission Date: 20080405
  Serious: Yes (Other)
  Sender: FDA-Public Use
  Company Number: MX-GILEAD-2007-0013795

PATIENT
  Age: 57 Year
  Sex: Male
  Weight: 57 kg

DRUGS (5)
  1. TRUVADA [Suspect]
     Indication: HIV INFECTION
     Route: 048
     Dates: start: 20070701
  2. TRUVADA [Suspect]
     Route: 048
     Dates: start: 20070607, end: 20070615
  3. EFAVIRENZ [Suspect]
     Indication: HIV INFECTION
     Route: 048
     Dates: start: 20070817
  4. EFAVIRENZ [Suspect]
     Route: 048
     Dates: start: 20070701
  5. EFAVIRENZ [Suspect]
     Route: 048
     Dates: start: 20070607, end: 20070616

REACTIONS (1)
  - HAEMATURIA [None]
